FAERS Safety Report 5199046-8 (Version None)
Quarter: 2006Q4

REPORT INFORMATION
  Report Type: 
  Country: None (occurrence: None)
  Receive Date: 20060919
  Receipt Date: 20060330
  Transmission Date: 20070319
  Serious: Yes (Other)
  Sender: FDA-Public Use
  Company Number: HQWYE638105APR06

PATIENT
  Age: 84 Year
  Sex: Female
  Weight: 63.56 kg

DRUGS (6)
  1. ADVIL [Suspect]
     Indication: ARTHRITIS
     Dosage: 1-2 LIQUI GELS AS NEEDED, ORAL
     Route: 048
     Dates: start: 20050301
  2. CARDIZEM [Concomitant]
  3. LEVOXYL [Concomitant]
  4. MECLIZINE [Concomitant]
  5. NEXIUM [Concomitant]
  6. PLAVIX [Concomitant]

REACTIONS (2)
  - DIZZINESS [None]
  - HYPOAESTHESIA [None]
